FAERS Safety Report 7541630-8 (Version None)
Quarter: 2011Q2

REPORT INFORMATION
  Report Type: 
  Country: None (occurrence: None)
  Receive Date: 20110603
  Receipt Date: 20110519
  Transmission Date: 20111010
  Serious: Yes (Hospitalization)
  Sender: FDA-Public Use
  Company Number: DSU-2011-03715

PATIENT
  Age: 37 Year
  Sex: Female
  Weight: 115 kg

DRUGS (1)
  1. OLMETEC (OLMESARTAN MEDOXOMIL) (20 MILLIGRAM, TABLET) (OLMESARTAN MEDO [Suspect]
     Indication: HYPERTENSION
     Dosage: 20 MG (20 MG, QD), PER ORAL
     Route: 048
     Dates: start: 20110503, end: 20110504

REACTIONS (3)
  - CONDITION AGGRAVATED [None]
  - TRANSIENT ISCHAEMIC ATTACK [None]
  - HYPERTENSION [None]
